FAERS Safety Report 24529261 (Version 1)
Quarter: 2024Q4

REPORT INFORMATION
  Report Type: Spontaneous
  Country: US (occurrence: None)
  Receive Date: 20241021
  Receipt Date: 20241021
  Transmission Date: 20250115
  Serious: Yes (Other)
  Sender: Public
  Company Number: None

PATIENT
  Age: 0 Year
  Sex: Male
  Weight: 3.1 kg

DRUGS (9)
  1. LURASIDONE [Suspect]
     Active Substance: LURASIDONE
     Indication: Bipolar disorder
     Dates: start: 20211018, end: 20211122
  2. LURASIDONE [Suspect]
     Active Substance: LURASIDONE
     Indication: Maternal condition affecting foetus
  3. maternal: Li+ carbonate [Concomitant]
  4. maternal: bupropion XL [Concomitant]
  5. maternal: trazodone [Concomitant]
  6. maternal: lisdexamfetamine dimesylate [Concomitant]
  7. maternal: metformin [Concomitant]
  8. maternal: hydroxyzine pamoate [Concomitant]
  9. maternal: bupropion ER [Concomitant]

REACTIONS (13)
  - Maternal drugs affecting foetus [None]
  - Exposure during pregnancy [None]
  - Neonatal respiratory failure [None]
  - Neonatal respiratory arrest [None]
  - Atrial septal defect [None]
  - Atrial septal defect [None]
  - Patent ductus arteriosus [None]
  - Mass [None]
  - Spinal cord compression [None]
  - Leiomyoma [None]
  - Benign neoplasm [None]
  - Myelomalacia [None]
  - Hypotonia [None]

NARRATIVE: CASE EVENT DATE: 20220708
